FAERS Safety Report 7256314-3 (Version None)
Quarter: 2011Q1

REPORT INFORMATION
  Report Type: 
  Country: None (occurrence: None)
  Receive Date: 20110129
  Receipt Date: 20100709
  Transmission Date: 20110831
  Serious: No
  Sender: FDA-Public Use
  Company Number: US-ABBOTT-10P-163-0639502-00

PATIENT
  Sex: Male
  Weight: 77.18 kg

DRUGS (4)
  1. UNKNOWN MEDICATION [Concomitant]
     Indication: SEASONAL ALLERGY
     Dosage: TAKES DAILY IN SPRING AND FALL
     Route: 048
  2. HUMIRA [Suspect]
     Indication: CROHN'S DISEASE
     Dosage: 160MG 1 IN 1 DAY
     Route: 050
  3. LOVAZA [Concomitant]
     Indication: PRODUCT USED FOR UNKNOWN INDICATION
  4. HUMIRA [Suspect]
     Indication: COLITIS ULCERATIVE
     Dates: start: 20081201

REACTIONS (10)
  - BLOOD IRON DECREASED [None]
  - BREATH ODOUR [None]
  - SKIN ODOUR ABNORMAL [None]
  - ARTHRALGIA [None]
  - HERPES ZOSTER [None]
  - JOINT RANGE OF MOTION DECREASED [None]
  - HYPOAESTHESIA [None]
  - PARAESTHESIA [None]
  - FATIGUE [None]
  - PAIN [None]
